FAERS Safety Report 10333751 (Version 2)
Quarter: 2014Q3

REPORT INFORMATION
  Report Type: Spontaneous
  Country: US (occurrence: US)
  Receive Date: 20140723
  Receipt Date: 20140723
  Transmission Date: 20150326
  Serious: No
  Sender: FDA-Public Use
  Company Number: US-UNITED THERAPEUTICS-UTC-047922

PATIENT
  Age: 79 Year
  Sex: Female
  Weight: 94.98 kg

DRUGS (1)
  1. REMODULIN [Suspect]
     Active Substance: TREPROSTINIL
     Dosage: 0.005 UG/KG/MIN
     Route: 058
     Dates: start: 20140331

REACTIONS (5)
  - Asthenia [Unknown]
  - Headache [Unknown]
  - Weight increased [Unknown]
  - Oedema peripheral [Unknown]
  - Drug intolerance [Unknown]

NARRATIVE: CASE EVENT DATE: 2014
